FAERS Safety Report 15477517 (Version 1)
Quarter: 2018Q4

REPORT INFORMATION
  Report Type: Report from Study
  Country: PL (occurrence: PL)
  Receive Date: 20181009
  Receipt Date: 20181009
  Transmission Date: 20190205
  Serious: Yes (Other)
  Sender: FDA-Public Use
  Company Number: PL-ROCHE-2190703

PATIENT

DRUGS (2)
  1. RITUXIMAB. [Suspect]
     Active Substance: RITUXIMAB
     Indication: B-CELL LYMPHOMA
     Dosage: ON 1ST, 8TH, 15TH, AND 22TH, DAY OF 1ST TREATMENT CYCLE
     Route: 042
  2. PEMBROLIZUMAB. [Suspect]
     Active Substance: PEMBROLIZUMAB
     Indication: B-CELL LYMPHOMA
     Dosage: 16 TREATMENT CYCLES, STARTING ON 2ND DAY OF 1ST CYCLE
     Route: 065

REACTIONS (5)
  - Nausea [Unknown]
  - Infusion related reaction [Unknown]
  - Hypertension [Unknown]
  - Pancreatitis [Unknown]
  - Meningitis aseptic [Unknown]
